FAERS Safety Report 9096046 (Version 2)
Quarter: 2013Q4

REPORT INFORMATION
  Report Type: Spontaneous
  Country: GB (occurrence: GB)
  Receive Date: 20130207
  Receipt Date: 20131009
  Transmission Date: 20140711
  Serious: Yes (Hospitalization, Other)
  Sender: FDA-Public Use
  Company Number: GB-JNJFOC-20130201055

PATIENT
  Age: 53 Year
  Sex: Female
  Weight: 52 kg

DRUGS (5)
  1. PSEUDOEPHEDRINE HYDROCHLORIDE [Suspect]
     Indication: OTITIS MEDIA
     Route: 048
     Dates: start: 20121120, end: 20121127
  2. PSEUDOEPHEDRINE HYDROCHLORIDE [Suspect]
     Indication: EUSTACHIAN TUBE DISORDER
     Route: 048
     Dates: start: 20121120, end: 20121127
  3. BECONASE AQUEOUS [Suspect]
     Indication: OTITIS MEDIA
     Route: 045
     Dates: start: 20121120, end: 20121127
  4. BECONASE AQUEOUS [Suspect]
     Indication: EUSTACHIAN TUBE DISORDER
     Route: 045
     Dates: start: 20121120, end: 20121127
  5. CLARITHROMYCIN [Suspect]
     Indication: OTITIS MEDIA
     Route: 048
     Dates: start: 20121120, end: 20121127

REACTIONS (15)
  - Aggression [Recovered/Resolved]
  - Agitation [Recovered/Resolved]
  - Brief psychotic disorder with marked stressors [Recovered/Resolved]
  - Confusional state [Recovered/Resolved]
  - Delusional perception [Recovered/Resolved]
  - Feeling abnormal [Recovered/Resolved]
  - Anxiety [Recovered/Resolved]
  - Disturbance in attention [Recovered/Resolved]
  - Poor quality sleep [Recovered/Resolved]
  - Repetitive speech [Recovered/Resolved]
  - Screaming [Recovered/Resolved]
  - Staring [Recovered/Resolved]
  - Stress [Recovered/Resolved]
  - Unresponsive to stimuli [Recovered/Resolved]
  - Abnormal dreams [Recovered/Resolved]
